FAERS Safety Report 10820602 (Version 1)
Quarter: 2015Q1

REPORT INFORMATION
  Report Type: Report from Study
  Country: US (occurrence: US)
  Receive Date: 20150218
  Receipt Date: 20150218
  Transmission Date: 20150721
  Serious: No
  Sender: FDA-Public Use
  Company Number: US-ABBVIE-14K-163-1298783-00

PATIENT
  Sex: Female

DRUGS (1)
  1. HUMIRA [Suspect]
     Active Substance: ADALIMUMAB
     Indication: CROHN^S DISEASE
     Route: 065
     Dates: start: 201406

REACTIONS (8)
  - Blood blister [Recovered/Resolved]
  - Skin haemorrhage [Unknown]
  - Blister [Recovered/Resolved]
  - Skin exfoliation [Unknown]
  - Scar [Unknown]
  - Blister [Unknown]
  - Injection site reaction [Not Recovered/Not Resolved]
  - Fungal infection [Unknown]

NARRATIVE: CASE EVENT DATE: 2014
